FAERS Safety Report 25263976 (Version 1)
Quarter: 2025Q2

REPORT INFORMATION
  Report Type: Spontaneous
  Country: DE (occurrence: None)
  Receive Date: 20250501
  Receipt Date: 20250501
  Transmission Date: 20250717
  Serious: Yes (Disabling, Other)
  Sender: FDA-CTU
  Company Number: None

PATIENT
  Age: 30 Year
  Sex: Male
  Weight: 102 kg

DRUGS (1)
  1. SERTRALINE [Suspect]
     Active Substance: SERTRALINE HYDROCHLORIDE
     Indication: Depression
     Dates: start: 20130601, end: 20130629

REACTIONS (6)
  - Libido decreased [None]
  - Erectile dysfunction [None]
  - Erectile dysfunction [None]
  - Male orgasmic disorder [None]
  - Anhedonia [None]
  - Emotional disorder [None]

NARRATIVE: CASE EVENT DATE: 20130601
